FAERS Safety Report 9411587 (Version 1)
Quarter: 2013Q3

REPORT INFORMATION
  Report Type: Spontaneous
  Country: US (occurrence: None)
  Receive Date: 20130718
  Receipt Date: 20130718
  Transmission Date: 20140515
  Serious: Yes (Other)
  Sender: FDA-Public Use
  Company Number: None

PATIENT
  Age: 73 Year
  Sex: Male
  Weight: 87.09 kg

DRUGS (1)
  1. RAPAFLO [Suspect]
     Route: 048
     Dates: start: 20130510, end: 20130610

REACTIONS (3)
  - Dizziness [None]
  - Dizziness [None]
  - Pollakiuria [None]
